FAERS Safety Report 25199525 (Version 1)
Quarter: 2025Q2

REPORT INFORMATION
  Report Type: Report from Study
  Country: ZA (occurrence: ZA)
  Receive Date: 20250415
  Receipt Date: 20250415
  Transmission Date: 20250717
  Serious: Yes (Hospitalization)
  Sender: NOVARTIS
  Company Number: ZA-002147023-NVSC2023ZA100235

PATIENT
  Age: 41 Year
  Sex: Female

DRUGS (3)
  1. SIPONIMOD [Suspect]
     Active Substance: SIPONIMOD
     Indication: Secondary progressive multiple sclerosis
     Dosage: 2 MG, QD
     Route: 048
     Dates: start: 20230428
  2. SIPONIMOD [Suspect]
     Active Substance: SIPONIMOD
     Dosage: 0.25 MG, QD (ADMINISTRATION AS PER KIENDRA TITRATION SCHEDULE)
     Route: 048
     Dates: start: 20230429
  3. SIPONIMOD [Suspect]
     Active Substance: SIPONIMOD
     Dosage: 2 MG, QD
     Route: 048
     Dates: start: 20230429

REACTIONS (24)
  - Infection [Unknown]
  - Asthenia [Recovered/Resolved]
  - Fatigue [Recovered/Resolved]
  - Skin lesion [Recovered/Resolved]
  - Feeling abnormal [Recovered/Resolved]
  - Contusion [Recovered/Resolved]
  - Hypotension [Unknown]
  - Pain [Recovered/Resolved]
  - Abdominal pain lower [Unknown]
  - Dizziness [Unknown]
  - Nausea [Recovering/Resolving]
  - Headache [Recovered/Resolved]
  - Influenza [Unknown]
  - Chest pain [Unknown]
  - Rhinorrhoea [Unknown]
  - Vision blurred [Unknown]
  - Periorbital swelling [Unknown]
  - Eye swelling [Unknown]
  - Productive cough [Unknown]
  - Arthralgia [Unknown]
  - Joint swelling [Unknown]
  - Arthropathy [Unknown]
  - Upper respiratory tract infection [Unknown]
  - Product dose omission in error [Unknown]

NARRATIVE: CASE EVENT DATE: 20230429
